FAERS Safety Report 23268553 (Version 1)
Quarter: 2023Q4

REPORT INFORMATION
  Report Type: Spontaneous
  Country: US (occurrence: None)
  Receive Date: 20231206
  Receipt Date: 20231206
  Transmission Date: 20240110
  Serious: No
  Sender: FDA-Public Use
  Company Number: None

PATIENT
  Age: 83 Year
  Sex: Female
  Weight: 57.61 kg

DRUGS (4)
  1. DONEPEZIL [Suspect]
     Active Substance: DONEPEZIL
     Indication: Dementia
     Dosage: FREQUENCY : AT BEDTIME;?
     Route: 048
     Dates: end: 20231113
  2. RAMIPMIL [Concomitant]
  3. ROSUVASTATIN [Concomitant]
     Active Substance: ROSUVASTATIN
  4. CITALOPRAM [Concomitant]
     Active Substance: CITALOPRAM HYDROBROMIDE

REACTIONS (7)
  - Palpitations [None]
  - Restlessness [None]
  - Crying [None]
  - Anxiety [None]
  - Somnolence [None]
  - Product dose omission issue [None]
  - Therapy cessation [None]

NARRATIVE: CASE EVENT DATE: 20231110
